FAERS Safety Report 10076087 (Version 1)
Quarter: 2014Q2

REPORT INFORMATION
  Report Type: Spontaneous
  Country: US (occurrence: US)
  Receive Date: 20140414
  Receipt Date: 20140414
  Transmission Date: 20141212
  Serious: No
  Sender: FDA-Public Use
  Company Number: US-PFIZER INC-2014099953

PATIENT
  Age: 49 Year
  Sex: Female

DRUGS (3)
  1. ERYTHROMYCIN [Suspect]
     Dosage: UNK
  2. XELJANZ [Interacting]
     Indication: RHEUMATOID ARTHRITIS
     Dosage: 5 MG, UNK
     Dates: start: 20140301
  3. VENLAFAXINE HCL [Suspect]
     Dosage: UNK

REACTIONS (3)
  - Headache [Unknown]
  - Blood pressure increased [Unknown]
  - Drug interaction [Unknown]
